FAERS Safety Report 10019560 (Version 2)
Quarter: 2014Q1

REPORT INFORMATION
  Report Type: Spontaneous
  Country: LB (occurrence: LB)
  Receive Date: 20140318
  Receipt Date: 20140318
  Transmission Date: 20141002
  Serious: Yes (Other)
  Sender: FDA-Public Use
  Company Number: LB-ABBVIE-13P-093-1087896-00

PATIENT
  Sex: Male
  Weight: 22.7 kg

DRUGS (1)
  1. HUMIRA [Suspect]
     Indication: CROHN^S DISEASE
     Route: 058
     Dates: start: 20130508, end: 20131008

REACTIONS (10)
  - Ulcer [Recovered/Resolved]
  - Crohn^s disease [Recovered/Resolved]
  - Large intestinal ulcer [Unknown]
  - Granuloma [Unknown]
  - Oedema [Recovered/Resolved]
  - C-reactive protein increased [Recovered/Resolved]
  - Pyrexia [Recovered/Resolved]
  - Fistula [Unknown]
  - Drug ineffective [Unknown]
  - Drug specific antibody present [Unknown]
